FAERS Safety Report 10627579 (Version 2)
Quarter: 2014Q4

REPORT INFORMATION
  Report Type: Spontaneous
  Country: JP (occurrence: JP)
  Receive Date: 20141205
  Receipt Date: 20141205
  Transmission Date: 20150529
  Serious: Yes (Death)
  Sender: FDA-Public Use
  Company Number: JP-ROCHE-1441457

PATIENT
  Age: 75 Year
  Sex: Female
  Weight: 38 kg

DRUGS (10)
  1. LONGES [Concomitant]
     Active Substance: LISINOPRIL
     Route: 048
     Dates: start: 20120216
  2. AMLODIN [Concomitant]
     Active Substance: AMLODIPINE BESYLATE
     Route: 048
     Dates: start: 20130404, end: 20130502
  3. PURSENNID [Concomitant]
     Active Substance: SENNOSIDES A AND B
     Route: 048
  4. URSO [Concomitant]
     Active Substance: URSODIOL
     Route: 048
  5. BLOPRESS [Concomitant]
     Active Substance: CANDESARTAN CILEXETIL
     Route: 048
  6. MIRCERA [Suspect]
     Active Substance: PEGZEREPOETIN ALFA
     Indication: NEPHROGENIC ANAEMIA
     Dosage: MOST RECENT DOSE ON 27/JUN/2013
     Route: 058
     Dates: start: 20120712
  7. AMLODIN [Concomitant]
     Active Substance: AMLODIPINE BESYLATE
     Route: 048
     Dates: start: 20120712, end: 20130403
  8. BASEN (JAPAN) [Concomitant]
     Route: 048
  9. EQUA [Concomitant]
     Active Substance: VILDAGLIPTIN
     Route: 048
     Dates: start: 20120216
  10. AMLODIN [Concomitant]
     Active Substance: AMLODIPINE BESYLATE
     Route: 048
     Dates: start: 20130503

REACTIONS (1)
  - Bile duct cancer [Fatal]

NARRATIVE: CASE EVENT DATE: 20131009
